FAERS Safety Report 6587619-7 (Version None)
Quarter: 2010Q1

REPORT INFORMATION
  Report Type: 
  Country: None (occurrence: None)
  Receive Date: 20100218
  Receipt Date: 20100210
  Transmission Date: 20100710
  Serious: Yes (Other)
  Sender: FDA-Public Use
  Company Number: US-BAXTER-2010BH002405

PATIENT
  Age: 3 Year
  Sex: Male

DRUGS (6)
  1. GAMMAGARD LIQUID [Suspect]
     Indication: KAWASAKI'S DISEASE
     Route: 042
     Dates: start: 20100121, end: 20100121
  2. GAMMAGARD LIQUID [Suspect]
     Route: 042
     Dates: start: 20100121, end: 20100121
  3. GAMMAGARD LIQUID [Suspect]
     Route: 042
     Dates: start: 20100125, end: 20100125
  4. GAMMAGARD LIQUID [Suspect]
     Route: 042
     Dates: start: 20100125, end: 20100125
  5. GAMMAGARD LIQUID [Suspect]
     Route: 042
     Dates: start: 20100121, end: 20100121
  6. GAMMAGARD LIQUID [Suspect]
     Route: 042
     Dates: start: 20100125, end: 20100125

REACTIONS (1)
  - ANTI-HBC IGG ANTIBODY POSITIVE [None]
